FAERS Safety Report 10508920 (Version 1)
Quarter: 2014Q3

REPORT INFORMATION
  Report Type: Spontaneous
  Country: None (occurrence: None)
  Receive Date: 20140915
  Receipt Date: 20140915
  Transmission Date: 20150326
  Serious: Yes (Hospitalization, Other)
  Sender: FDA-Public Use
  Company Number: 2014-US-008696

PATIENT
  Age: 41 Year
  Sex: Female
  Weight: 79.8 kg

DRUGS (4)
  1. XYREM [Suspect]
     Active Substance: SODIUM OXYBATE
     Indication: SLEEP DISORDER
     Route: 048
     Dates: start: 200805
  2. RISPERIDONE. [Concomitant]
     Active Substance: RISPERIDONE
  3. WELLBUTRIN [Suspect]
     Active Substance: BUPROPION HYDROCHLORIDE
     Indication: PRODUCT USED FOR UNKNOWN INDICATION
     Dosage: UNKNOWN DOSE
     Route: 048
     Dates: end: 20140620
  4. ROZEREM [Concomitant]
     Active Substance: RAMELTEON

REACTIONS (5)
  - Depression [None]
  - Hallucination [None]
  - Off label use [None]
  - Anxiety [None]
  - Visual impairment [None]

NARRATIVE: CASE EVENT DATE: 2008
